FAERS Safety Report 6755810-2 (Version None)
Quarter: 2010Q2

REPORT INFORMATION
  Report Type: 
  Country: None (occurrence: None)
  Receive Date: 20100524
  Receipt Date: 20100303
  Transmission Date: 20101027
  Serious: No
  Sender: FDA-Public Use
  Company Number: 008248

PATIENT
  Sex: Female
  Weight: 47.6 kg

DRUGS (4)
  1. CIMZIA [Suspect]
     Indication: CROHN'S DISEASE
     Dosage: (200 MG, EVERY 2 WEEKS SUBCUTANEOUS)
     Route: 058
     Dates: start: 20091201
  2. MERCAPTOPURINE [Concomitant]
  3. TYLENOL W/ CODEINE [Concomitant]
  4. LEXAPRO [Concomitant]

REACTIONS (3)
  - HORMONE LEVEL ABNORMAL [None]
  - URETHRITIS [None]
  - URINARY TRACT INFECTION [None]
